FAERS Safety Report 25006953 (Version 1)
Quarter: 2025Q1

REPORT INFORMATION
  Report Type: Spontaneous
  Country: ZA (occurrence: ZA)
  Receive Date: 20250225
  Receipt Date: 20250225
  Transmission Date: 20250409
  Serious: Yes (Hospitalization)
  Sender: DR REDDYS
  Company Number: None

PATIENT
  Age: 30 Year
  Sex: Male

DRUGS (2)
  1. LAMOTRIGINE [Suspect]
     Active Substance: LAMOTRIGINE
     Indication: Asthma late onset
  2. LAMOTRIGINE [Suspect]
     Active Substance: LAMOTRIGINE
     Indication: Depression

REACTIONS (5)
  - Restrictive cardiomyopathy [Unknown]
  - Eosinophilic myocarditis [Recovered/Resolved]
  - Electrocardiogram ST segment depression [Unknown]
  - Cardiac ventricular thrombosis [Recovered/Resolved]
  - Myocardial necrosis [Unknown]
